FAERS Safety Report 16242493 (Version 1)
Quarter: 2019Q2

REPORT INFORMATION
  Report Type: Spontaneous
  Country: IT (occurrence: IT)
  Receive Date: 20190426
  Receipt Date: 20190426
  Transmission Date: 20190711
  Serious: Yes (Hospitalization)
  Sender: FDA-Public Use
  Company Number: IT-SA-2018SA159782

PATIENT
  Age: 87 Year
  Sex: Male

DRUGS (8)
  1. TAMSULOSIN HYDROCHLORIDE. [Suspect]
     Active Substance: TAMSULOSIN HYDROCHLORIDE
     Indication: BENIGN PROSTATIC HYPERPLASIA
     Dosage: 0.4 MG, QD
     Route: 048
     Dates: start: 20170101, end: 20170515
  2. FINASTERIDE. [Concomitant]
     Active Substance: FINASTERIDE
  3. LUVION [CANRENOIC ACID] [Concomitant]
     Active Substance: CANRENOIC ACID
  4. CARDIRENE [Concomitant]
     Active Substance: ASPIRIN DL-LYSINE
  5. LANSOX [Concomitant]
     Active Substance: LANSOPRAZOLE
  6. VILDAGLIPTIN [Concomitant]
     Active Substance: VILDAGLIPTIN
  7. LASIX [Concomitant]
     Active Substance: FUROSEMIDE
  8. NORVASC [Concomitant]
     Active Substance: AMLODIPINE BESYLATE

REACTIONS (1)
  - Balance disorder [Unknown]

NARRATIVE: CASE EVENT DATE: 20170515
